FAERS Safety Report 10707763 (Version 5)
Quarter: 2015Q4

REPORT INFORMATION
  Report Type: Report from Study
  Country: US (occurrence: US)
  Receive Date: 20150113
  Receipt Date: 20151201
  Transmission Date: 20160304
  Serious: Yes (Hospitalization)
  Sender: FDA-Public Use
  Company Number: US-ALEXION-A201500057

PATIENT
  Age: 39 Year
  Sex: Female

DRUGS (6)
  1. NORVASC [Concomitant]
     Active Substance: AMLODIPINE BESYLATE
     Indication: PRODUCT USED FOR UNKNOWN INDICATION
     Route: 065
  2. SOLIRIS [Suspect]
     Active Substance: ECULIZUMAB
     Indication: HAEMOLYTIC URAEMIC SYNDROME
     Dosage: 1200 MG, Q2W
     Route: 042
  3. MS [Concomitant]
     Indication: PAIN IN EXTREMITY
     Dosage: 15 MG, UNK
     Route: 065
  4. LISINOPRIL. [Concomitant]
     Active Substance: LISINOPRIL
     Indication: PRODUCT USED FOR UNKNOWN INDICATION
     Route: 065
  5. CLONIDINE. [Concomitant]
     Active Substance: CLONIDINE
     Indication: PRODUCT USED FOR UNKNOWN INDICATION
     Dosage: PATCH, QW
     Route: 065
  6. AMLODIPINE [Concomitant]
     Active Substance: AMLODIPINE BESYLATE
     Indication: PRODUCT USED FOR UNKNOWN INDICATION
     Route: 065

REACTIONS (12)
  - Hypertension [Recovered/Resolved]
  - Back pain [Unknown]
  - Abdominal pain [Not Recovered/Not Resolved]
  - Blood pressure increased [Recovered/Resolved]
  - Breakthrough pain [Unknown]
  - Abdominal pain [Recovered/Resolved]
  - Vomiting [Recovered/Resolved]
  - Nausea [Recovered/Resolved]
  - Pain in extremity [Unknown]
  - Headache [Recovered/Resolved]
  - Stress [Recovering/Resolving]
  - Heart rate increased [Unknown]

NARRATIVE: CASE EVENT DATE: 20150808
